FAERS Safety Report 22328891 (Version 1)
Quarter: 2023Q2

REPORT INFORMATION
  Report Type: Spontaneous
  Country: FR (occurrence: FR)
  Receive Date: 20230517
  Receipt Date: 20230517
  Transmission Date: 20230722
  Serious: Yes (Other)
  Sender: FDA-Public Use
  Company Number: None

PATIENT
  Age: 42 Year
  Sex: Female
  Weight: 68 kg

DRUGS (1)
  1. AMOXICILLIN\CLAVULANIC ACID [Suspect]
     Active Substance: AMOXICILLIN\CLAVULANIC ACID
     Indication: Lung disorder
     Dosage: 1 SACHET MORNING NOON AND EVENING   , AMOXICILLINE/ACIDE CLAVULANIQUE TEVA , 1 G/125 MG ADULTS, POW
     Dates: start: 20230411, end: 20230417

REACTIONS (3)
  - Eyelid oedema [Recovered/Resolved]
  - Pruritus [Recovered/Resolved]
  - Rash [Recovered/Resolved]

NARRATIVE: CASE EVENT DATE: 20230417
